FAERS Safety Report 12952485 (Version 10)
Quarter: 2017Q2

REPORT INFORMATION
  Report Type: Report from Study
  Country: US (occurrence: US)
  Receive Date: 20161117
  Receipt Date: 20170421
  Transmission Date: 20170830
  Serious: Yes (Other)
  Sender: FDA-Public Use
  Company Number: US-009507513-1611USA007116

PATIENT
  Age: 71 Year
  Sex: Male

DRUGS (4)
  1. PEMBROLIZUMAB. [Suspect]
     Active Substance: PEMBROLIZUMAB
     Dosage: 160 MG, EVERY 2 WEEKS (Q2W)
     Route: 042
     Dates: start: 20170224
  2. PEMBROLIZUMAB. [Suspect]
     Active Substance: PEMBROLIZUMAB
     Dosage: UNK, QOW
     Route: 042
     Dates: start: 20161223
  3. PEMBROLIZUMAB. [Suspect]
     Active Substance: PEMBROLIZUMAB
     Indication: METASTATIC MALIGNANT MELANOMA
     Dosage: 2 MG/KG, EVERY 2 WEEKS (Q2W)
     Route: 042
     Dates: start: 20150904, end: 20161111
  4. XGEVA [Concomitant]
     Active Substance: DENOSUMAB
     Dosage: UNK

REACTIONS (18)
  - Skin toxicity [Recovered/Resolved]
  - Crohn^s disease [Unknown]
  - Renal atrophy [Unknown]
  - Drug eruption [Not Recovered/Not Resolved]
  - Dehydration [Unknown]
  - Crohn^s disease [Unknown]
  - Blood blister [Unknown]
  - Anal incontinence [Recovering/Resolving]
  - Bone scan abnormal [Unknown]
  - Arthritis [Not Recovered/Not Resolved]
  - Varicella [Recovering/Resolving]
  - Rash erythematous [Recovering/Resolving]
  - Rash macular [Unknown]
  - Abnormal faeces [Recovering/Resolving]
  - Colitis [Recovering/Resolving]
  - Product use issue [Unknown]
  - Vitiligo [Unknown]
  - Gastrointestinal motility disorder [Recovering/Resolving]

NARRATIVE: CASE EVENT DATE: 2015
